FAERS Safety Report 6938179-X (Version None)
Quarter: 2010Q3

REPORT INFORMATION
  Report Type: 
  Country: None (occurrence: None)
  Receive Date: 20100817
  Receipt Date: 20100805
  Transmission Date: 20110219
  Serious: Yes (Hospitalization)
  Sender: FDA-Public Use
  Company Number: 2010MA001545

PATIENT
  Age: 73 Year
  Sex: Male

DRUGS (2)
  1. DICLOFENAC SODIUM [Suspect]
     Indication: BACK PAIN
     Dosage: ; PO
     Route: 048
  2. INDOMETHACIN [Concomitant]

REACTIONS (11)
  - BLOOD ALBUMIN DECREASED [None]
  - BLOOD UREA INCREASED [None]
  - COLONIC POLYP [None]
  - FIBROSIS [None]
  - GASTROINTESTINAL EROSION [None]
  - HAEMOGLOBIN DECREASED [None]
  - INTESTINAL DIAPHRAGM DISEASE [None]
  - JEJUNAL STENOSIS [None]
  - PROTEIN TOTAL DECREASED [None]
  - SMALL INTESTINAL HAEMORRHAGE [None]
  - SYNCOPE [None]
